FAERS Safety Report 8086526-0 (Version None)
Quarter: 2012Q1

REPORT INFORMATION
  Report Type: 
  Country: None (occurrence: None)
  Receive Date: 20120128
  Receipt Date: 20110408
  Transmission Date: 20120608
  Serious: No
  Sender: FDA-Public Use
  Company Number: US-ABBOTT-11P-163-0719312-00

PATIENT
  Sex: Male
  Weight: 70.37 kg

DRUGS (2)
  1. HUMIRA [Suspect]
     Indication: CROHN'S DISEASE
     Dosage: CROHNS' STARTER DOSE 4 PENS 2WKS LATER 2 PENS 1 Q2
     Route: 058
     Dates: start: 20110201
  2. METHOTREXATE [Concomitant]
     Indication: CROHN'S DISEASE
     Route: 050

REACTIONS (5)
  - INCREASED UPPER AIRWAY SECRETION [None]
  - CHEST DISCOMFORT [None]
  - COUGH [None]
  - PRODUCTIVE COUGH [None]
  - RESPIRATORY TRACT CONGESTION [None]
